FAERS Safety Report 15862015 (Version 1)
Quarter: 2019Q1

REPORT INFORMATION
  Report Type: Spontaneous
  Country: GB (occurrence: GB)
  Receive Date: 20190124
  Receipt Date: 20190124
  Transmission Date: 20190417
  Serious: Yes (Other)
  Sender: FDA-Public Use
  Company Number: PHHY2018GB198704

PATIENT
  Age: 63 Year
  Sex: Male

DRUGS (1)
  1. HYDROXYCHLOROQUINE [Suspect]
     Active Substance: HYDROXYCHLOROQUINE
     Indication: ARTHRITIS
     Dosage: 200 MG, BID
     Route: 065

REACTIONS (11)
  - Drug reaction with eosinophilia and systemic symptoms [Unknown]
  - Rash [Recovering/Resolving]
  - Erythema [Unknown]
  - Swelling of eyelid [Unknown]
  - Periorbital oedema [Unknown]
  - Skin reaction [Recovering/Resolving]
  - Pyrexia [Unknown]
  - Scab [Unknown]
  - Skin discolouration [Unknown]
  - Eosinophilia [Unknown]
  - Oral discomfort [Unknown]
